FAERS Safety Report 6347585-6 (Version None)
Quarter: 2009Q3

REPORT INFORMATION
  Report Type: 
  Country: None (occurrence: None)
  Receive Date: 20090910
  Receipt Date: 20090811
  Transmission Date: 20100115
  Serious: Yes (Other)
  Sender: FDA-Public Use
  Company Number: US-JNJFOC-20090903116

PATIENT
  Age: 89 Year
  Sex: Female

DRUGS (2)
  1. ACETAMINOPHEN AND CODEINE PHOSPHATE [Suspect]
     Indication: PAIN
     Route: 065
  2. ACETAMINOPHEN [Concomitant]
     Indication: PAIN

REACTIONS (2)
  - COORDINATION ABNORMAL [None]
  - JUDGEMENT IMPAIRED [None]
